FAERS Safety Report 12160718 (Version 1)
Quarter: 2016Q1

REPORT INFORMATION
  Report Type: Spontaneous
  Country: US (occurrence: US)
  Receive Date: 20160308
  Receipt Date: 20160308
  Transmission Date: 20160526
  Serious: Yes (Other)
  Sender: FDA-Public Use
  Company Number: US-ASTRAZENECA-2016SE22634

PATIENT
  Sex: Female
  Weight: 77.1 kg

DRUGS (7)
  1. NEXIUM [Suspect]
     Active Substance: ESOMEPRAZOLE MAGNESIUM
     Indication: GASTROOESOPHAGEAL REFLUX DISEASE
     Route: 048
     Dates: start: 2001
  2. BABY ASPIRIN [Concomitant]
     Active Substance: ASPIRIN
     Indication: BLOOD CHOLESTEROL INCREASED
     Route: 048
  3. PRILOSEC [Suspect]
     Active Substance: OMEPRAZOLE MAGNESIUM
     Indication: GASTROOESOPHAGEAL REFLUX DISEASE
     Route: 048
     Dates: end: 2001
  4. MONTELUKAST [Concomitant]
     Active Substance: MONTELUKAST SODIUM
     Indication: MULTIPLE ALLERGIES
     Route: 048
  5. QVAR [Concomitant]
     Active Substance: BECLOMETHASONE DIPROPIONATE
     Indication: MULTIPLE ALLERGIES
     Route: 055
     Dates: start: 2014
  6. ANASTROZOLE. [Suspect]
     Active Substance: ANASTROZOLE
     Indication: BREAST CANCER
     Route: 048
     Dates: start: 2012
  7. NEXIUM [Suspect]
     Active Substance: ESOMEPRAZOLE MAGNESIUM
     Indication: GASTROOESOPHAGEAL REFLUX DISEASE
     Route: 048
     Dates: start: 2001

REACTIONS (8)
  - Cyst [Unknown]
  - Gastrooesophageal reflux disease [Unknown]
  - Drug effect incomplete [Unknown]
  - Pharyngeal cyst [None]
  - Back disorder [Unknown]
  - Hypertension [Unknown]
  - Osteoporosis [Unknown]
  - Breast cancer [Unknown]

NARRATIVE: CASE EVENT DATE: 2011
